FAERS Safety Report 19861050 (Version 1)
Quarter: 2021Q3

REPORT INFORMATION
  Report Type: Spontaneous
  Country: FR (occurrence: FR)
  Receive Date: 20210920
  Receipt Date: 20210920
  Transmission Date: 20211014
  Serious: Yes (Other)
  Sender: FDA-Public Use
  Company Number: FR-PFIZER INC-202101154830

PATIENT
  Age: 75 Year
  Sex: Male
  Weight: 77 kg

DRUGS (6)
  1. ONDANSETRON RENAUDIN [Suspect]
     Active Substance: ONDANSETRON HYDROCHLORIDE
     Indication: VOMITING
     Dosage: 8 MG, 1X/DAY
     Route: 042
     Dates: start: 20210528, end: 20210610
  2. ALDACTONE [Suspect]
     Active Substance: SPIRONOLACTONE
     Indication: HYPERTENSION
     Dosage: 25 MG, 1X/DAY
     Route: 048
     Dates: start: 20210601
  3. LEVOFLOXACINE ARROW [Suspect]
     Active Substance: LEVOFLOXACIN
     Indication: INFECTION
     Dosage: 750 MG, 1X/DAY
     Route: 048
     Dates: start: 20210602, end: 20210614
  4. XATRAL [Suspect]
     Active Substance: ALFUZOSIN
     Dosage: 10 MG, 1X/DAY
     Route: 048
     Dates: start: 20210527
  5. INNOHEP [Suspect]
     Active Substance: TINZAPARIN SODIUM
     Dosage: UNK
     Route: 058
     Dates: start: 20210601
  6. LARGACTIL [CHLORPROMAZINE EMBONATE] [Suspect]
     Active Substance: CHLORPROMAZINE PAMOATE
     Dosage: 25 MG, 1X/DAY
     Route: 042
     Dates: start: 20210528, end: 20210614

REACTIONS (2)
  - Tinnitus [Not Recovered/Not Resolved]
  - Sudden hearing loss [Unknown]

NARRATIVE: CASE EVENT DATE: 20210606
